FAERS Safety Report 12459864 (Version 1)
Quarter: 2016Q2

REPORT INFORMATION
  Report Type: Spontaneous
  Country: BR (occurrence: BR)
  Receive Date: 20160613
  Receipt Date: 20160613
  Transmission Date: 20160815
  Serious: Yes (Hospitalization)
  Sender: FDA-Public Use
  Company Number: BR-GE HEALTHCARE MEDICAL DIAGNOSTICS-VISP-PR-1606S-0342

PATIENT
  Sex: Male

DRUGS (15)
  1. VISIPAQUE [Suspect]
     Active Substance: IODIXANOL
     Indication: THERAPEUTIC PROCEDURE
     Route: 065
     Dates: start: 20160328, end: 20160328
  2. ESOMEPRAZOLE [Concomitant]
     Active Substance: ESOMEPRAZOLE
  3. VISIPAQUE [Suspect]
     Active Substance: IODIXANOL
     Indication: DIAGNOSTIC PROCEDURE
     Route: 065
     Dates: start: 20160401, end: 20160401
  4. FUROSEMIDE. [Concomitant]
     Active Substance: FUROSEMIDE
  5. RANITIDINE. [Concomitant]
     Active Substance: RANITIDINE
  6. AAS [Concomitant]
     Active Substance: ASPIRIN
  7. GLICLAZIDE [Concomitant]
     Active Substance: GLICLAZIDE
  8. FEXOFENADINE [Concomitant]
     Active Substance: FEXOFENADINE\FEXOFENADINE HYDROCHLORIDE
  9. PREDNISONE. [Concomitant]
     Active Substance: PREDNISONE
  10. VISIPAQUE [Suspect]
     Active Substance: IODIXANOL
     Indication: CARDIAC DISORDER
  11. PURAN [Concomitant]
     Active Substance: LEVOTHYROXINE SODIUM
  12. ZYLORIC [Concomitant]
     Active Substance: ALLOPURINOL
  13. ANGIPRESS [Concomitant]
     Active Substance: ATENOLOL
  14. ENDOFOLIN [Concomitant]
     Active Substance: FOLIC ACID
  15. CRESTOR [Concomitant]
     Active Substance: ROSUVASTATIN CALCIUM

REACTIONS (4)
  - Pruritus [Unknown]
  - Blood creatinine increased [Unknown]
  - Rash [Unknown]
  - Rash maculo-papular [Unknown]

NARRATIVE: CASE EVENT DATE: 20160329
